FAERS Safety Report 9505867 (Version 1)
Quarter: 2013Q1

REPORT INFORMATION
  Report Type: Spontaneous
  Country: US (occurrence: None)
  Receive Date: 20130219
  Receipt Date: 20130219
  Transmission Date: 20140127
  Serious: Yes (Disabling)
  Sender: FDA-Public Use
  Company Number: 1201USA02612

PATIENT
  Age: 69 Year
  Sex: Male
  Weight: 104.3 kg

DRUGS (6)
  1. ZOCOR [Suspect]
     Indication: BLOOD CHOLESTEROL INCREASED
     Dosage: 20 MG, UNK , ORAL
     Route: 048
     Dates: start: 200808, end: 201109
  2. PRINIVIL(LISINOPRIL) [Concomitant]
  3. MK-9373 (METFORMIN)TABLET [Concomitant]
  4. COUMADIN (WARFARIN SODIUM) [Concomitant]
  5. SOTALOL HYDROCHLORIDE (SOTALOL HYDROCHLORIDE) [Concomitant]
  6. ASPIRIN (+) CLOPIDOGREL BISULFATE (ASPIRIN (+) CLOPIDOGREL BISULFATE) [Concomitant]

REACTIONS (4)
  - Myalgia [None]
  - Asthenia [None]
  - Muscular weakness [None]
  - Gait disturbance [None]
